FAERS Safety Report 4283887-5 (Version None)
Quarter: 2004Q1

REPORT INFORMATION
  Report Type: 
  Country: None (occurrence: None)
  Receive Date: 20040130
  Receipt Date: 20040121
  Transmission Date: 20041129
  Serious: Yes (Hospitalization)
  Sender: FDA-Public Use
  Company Number: 200400351

PATIENT
  Sex: Female

DRUGS (5)
  1. BOTOX [Suspect]
     Indication: MIGRAINE
     Dosage: 300 UNITS PRN IM
     Route: 030
     Dates: start: 20040106
  2. BOTOX [Suspect]
     Indication: TORTICOLLIS
     Dosage: 300 UNITS PRN IM
     Route: 030
     Dates: start: 20040106
  3. NEXIUM [Concomitant]
  4. EVISTA [Concomitant]
  5. MYSOLINE [Concomitant]

REACTIONS (9)
  - ASTHENIA [None]
  - BLOOD MAGNESIUM DECREASED [None]
  - BLOOD POTASSIUM DECREASED [None]
  - DEHYDRATION [None]
  - DYSKINESIA [None]
  - DYSPHAGIA [None]
  - EYELID FUNCTION DISORDER [None]
  - HEPATIC ENZYME INCREASED [None]
  - MUSCULAR WEAKNESS [None]
